FAERS Safety Report 8299334-2 (Version None)
Quarter: 2012Q2

REPORT INFORMATION
  Report Type: 
  Country: None (occurrence: None)
  Receive Date: 20120419
  Receipt Date: 20120404
  Transmission Date: 20120825
  Serious: Yes (Disabling)
  Sender: FDA-Public Use
  Company Number: GB-WATSON-2012-06636

PATIENT
  Age: 89 Year
  Sex: Male

DRUGS (8)
  1. CYANOCOBALAMIN [Concomitant]
     Indication: PRODUCT USED FOR UNKNOWN INDICATION
     Dosage: LONG TERM
     Route: 048
  2. ALENDRONATE SODIUM [Suspect]
     Indication: OSTEOPOROSIS
     Dosage: 70 MG, 1/WEEK
     Route: 048
     Dates: start: 20120112
  3. OMEPRAZOLE [Concomitant]
     Indication: PRODUCT USED FOR UNKNOWN INDICATION
     Dosage: 20 MG, UNKNOWN
     Route: 048
  4. ACETAMINOPHEN [Concomitant]
     Indication: PRODUCT USED FOR UNKNOWN INDICATION
     Dosage: 1000 MG, QID, 250 MG/5ML ORAL SUSPENSION
     Route: 048
  5. ADCAL                              /00056901/ [Concomitant]
     Indication: OSTEOPOROSIS
     Dosage: 1500 MG, DAILY
  6. SYMBICORT [Concomitant]
     Indication: ASTHMA
     Route: 055
  7. CITALOPRAM [Concomitant]
     Indication: PRODUCT USED FOR UNKNOWN INDICATION
     Dosage: 20 MG, DAILY, LONG TERM
     Route: 048
  8. HYDROXYUREA [Concomitant]
     Indication: THROMBOCYTOSIS
     Dosage: 500 MG, 1/WEEK
     Route: 048

REACTIONS (4)
  - MOUTH ULCERATION [None]
  - LIP ULCERATION [None]
  - ORAL MUCOSAL ERYTHEMA [None]
  - LIP EXFOLIATION [None]
